FAERS Safety Report 13463789 (Version 1)
Quarter: 2017Q2

REPORT INFORMATION
  Report Type: Spontaneous
  Country: US (occurrence: US)
  Receive Date: 20170420
  Receipt Date: 20170420
  Transmission Date: 20170830
  Serious: Yes (Other)
  Sender: FDA-Public Use
  Company Number: US-ROCHE-678456

PATIENT
  Age: 17 Year
  Sex: Female
  Weight: 79.4 kg

DRUGS (5)
  1. SPIRONOLACTONE. [Concomitant]
     Active Substance: SPIRONOLACTONE
     Route: 065
  2. ACCUTANE [Suspect]
     Active Substance: ISOTRETINOIN
     Indication: ACNE
     Route: 065
     Dates: start: 19990226, end: 19990731
  3. DOXYCYCLINE. [Concomitant]
     Active Substance: DOXYCYCLINE
     Route: 065
  4. MINOCYCLINE [Concomitant]
     Active Substance: MINOCYCLINE\MINOCYCLINE HYDROCHLORIDE
     Route: 065
  5. SOLODYN [Concomitant]
     Active Substance: MINOCYCLINE HYDROCHLORIDE
     Route: 065

REACTIONS (6)
  - Sacroiliitis [Unknown]
  - Depression [Unknown]
  - Blood cholesterol increased [Recovered/Resolved]
  - Inflammatory bowel disease [Unknown]
  - Colitis ulcerative [Unknown]
  - Back pain [Unknown]

NARRATIVE: CASE EVENT DATE: 199903
